FAERS Safety Report 19789016 (Version 1)
Quarter: 2021Q3

REPORT INFORMATION
  Report Type: Spontaneous
  Country: GB (occurrence: GB)
  Receive Date: 20210904
  Receipt Date: 20210904
  Transmission Date: 20211014
  Serious: Yes (Other)
  Sender: FDA-Public Use
  Company Number: GB-DRREDDYS-SPO/UKI/21/0139557

PATIENT
  Age: 63 Year
  Sex: Female
  Weight: 79.82 kg

DRUGS (8)
  1. EUMOVATE OINTMENT [Concomitant]
     Indication: PRODUCT USED FOR UNKNOWN INDICATION
  2. CHLORPHENAMINE MALEATE [Concomitant]
     Active Substance: CHLORPHENIRAMINE MALEATE
     Indication: PRODUCT USED FOR UNKNOWN INDICATION
  3. ATORVASTATIN CALCIUM. [Concomitant]
     Active Substance: ATORVASTATIN CALCIUM
     Indication: ILL-DEFINED DISORDER
  4. TERBINAFINE. [Suspect]
     Active Substance: TERBINAFINE
     Indication: FUNGAL INFECTION
     Route: 048
     Dates: start: 20210601
  5. AMLODIPINE [Concomitant]
     Active Substance: AMLODIPINE BESYLATE
     Indication: ILL-DEFINED DISORDER
     Dates: start: 2011
  6. QUININE BISULFATE [Concomitant]
     Active Substance: QUININE BISULFATE
     Indication: ILL-DEFINED DISORDER
  7. CETIRIZINE [Concomitant]
     Active Substance: CETIRIZINE HYDROCHLORIDE
     Indication: PRODUCT USED FOR UNKNOWN INDICATION
  8. DOUBLEBASE GEL [Concomitant]
     Indication: PRODUCT USED FOR UNKNOWN INDICATION

REACTIONS (1)
  - Polymorphic light eruption [Recovering/Resolving]

NARRATIVE: CASE EVENT DATE: 20210806
